FAERS Safety Report 11350393 (Version 1)
Quarter: 2015Q3

REPORT INFORMATION
  Report Type: Spontaneous
  Country: US (occurrence: None)
  Receive Date: 20150805
  Receipt Date: 20150805
  Transmission Date: 20151125
  Serious: No
  Sender: FDA-Public Use
  Company Number: None

PATIENT
  Age: 64 Year
  Sex: Male

DRUGS (2)
  1. MIDAZOLAM [Suspect]
     Active Substance: MIDAZOLAM\MIDAZOLAM HYDROCHLORIDE
     Indication: CATHETERISATION CARDIAC
     Route: 042
     Dates: start: 20141124, end: 20141124
  2. FENTANYL. [Suspect]
     Active Substance: FENTANYL
     Route: 042

REACTIONS (1)
  - Confusional state [None]

NARRATIVE: CASE EVENT DATE: 20141124
